FAERS Safety Report 4646677-7 (Version None)
Quarter: 2005Q2

REPORT INFORMATION
  Report Type: 
  Country: None (occurrence: None)
  Receive Date: 20050425
  Receipt Date: 20050411
  Transmission Date: 20051028
  Serious: Yes (Hospitalization)
  Sender: FDA-Public Use
  Company Number: SAGL-ZLB/05/37/FRA

PATIENT
  Age: 44 Year
  Sex: Female
  Weight: 83 kg

DRUGS (1)
  1. SANDOGLOBULIN [Suspect]
     Indication: SYSTEMIC LUPUS ERYTHEMATOSUS
     Dosage: 33 G, O.A.D., I.V.
     Route: 042
     Dates: start: 20050310, end: 20050311

REACTIONS (4)
  - BURNING SENSATION [None]
  - DRUG ERUPTION [None]
  - HYPERTHERMIA [None]
  - PRURITUS [None]
